FAERS Safety Report 10889113 (Version 2)
Quarter: 2015Q2

REPORT INFORMATION
  Report Type: Report from Study
  Country: BR (occurrence: BR)
  Receive Date: 20150305
  Receipt Date: 20150423
  Transmission Date: 20150821
  Serious: Yes (Hospitalization)
  Sender: FDA-Public Use
  Company Number: PHHY2015BR022576

PATIENT
  Age: 93 Year
  Sex: Male

DRUGS (2)
  1. EXELON PATCH [Suspect]
     Active Substance: RIVASTIGMINE
     Indication: MEMORY IMPAIRMENT
     Dosage: 4.6 MG, QD
     Route: 062
  2. EXELON PATCH [Suspect]
     Active Substance: RIVASTIGMINE
     Indication: ABNORMAL BEHAVIOUR
     Dosage: 9.5 MG, QD
     Route: 062
     Dates: start: 20150214

REACTIONS (11)
  - Catatonia [Recovering/Resolving]
  - Application site erythema [Recovering/Resolving]
  - Gait disturbance [Recovering/Resolving]
  - Application site hypersensitivity [Recovering/Resolving]
  - Fall [Recovering/Resolving]
  - Confusional state [Not Recovered/Not Resolved]
  - Application site erosion [Recovering/Resolving]
  - Product use issue [Unknown]
  - Application site pruritus [Not Recovered/Not Resolved]
  - Somnolence [Recovering/Resolving]
  - Memory impairment [Recovering/Resolving]

NARRATIVE: CASE EVENT DATE: 20150226
